FAERS Safety Report 9002656 (Version 1)
Quarter: 2013Q1

REPORT INFORMATION
  Report Type: Spontaneous
  Country: US (occurrence: US)
  Receive Date: 20130107
  Receipt Date: 20130107
  Transmission Date: 20140127
  Serious: Yes (Other)
  Sender: FDA-Public Use
  Company Number: US-PFIZER INC-2013003939

PATIENT
  Sex: Female

DRUGS (3)
  1. NEURONTIN [Suspect]
     Indication: HYPOAESTHESIA
     Dosage: UNK, 2 TIMES A DAY
  2. NEURONTIN [Suspect]
     Indication: BURNING SENSATION
  3. NEURONTIN [Suspect]
     Indication: PARAESTHESIA

REACTIONS (2)
  - Intervertebral disc protrusion [Unknown]
  - Drug ineffective for unapproved indication [Unknown]
